FAERS Safety Report 17590107 (Version 1)
Quarter: 2020Q1

REPORT INFORMATION
  Report Type: Spontaneous
  Country: FR (occurrence: FR)
  Receive Date: 20200327
  Receipt Date: 20200327
  Transmission Date: 20200409
  Serious: Yes (Death)
  Sender: FDA-Public Use
  Company Number: FR-TEVA-2020-FR-1210174

PATIENT
  Age: 70 Year
  Sex: Female
  Weight: 60 kg

DRUGS (18)
  1. LEVOTHYROX 100 MICROGRAMMES, COMPRIME SECABLE [Concomitant]
     Active Substance: LEVOTHYROXINE
     Dosage: 100 MICROGRAM
     Route: 048
  2. CARBAMAZEPINE SANDOZ [Concomitant]
     Active Substance: CARBAMAZEPINE
     Dosage: 400 MG
     Route: 048
  3. ESOMEPRAZOLE. [Concomitant]
     Active Substance: ESOMEPRAZOLE MAGNESIUM
     Dosage: 20 MG
     Route: 048
  4. DIFFU K [Concomitant]
     Active Substance: POTASSIUM CHLORIDE
     Dosage: 3 DOSAGE FORMS
  5. PACLITAXEL. [Suspect]
     Active Substance: PACLITAXEL
     Indication: OROPHARYNGEAL SQUAMOUS CELL CARCINOMA
     Dosage: C1J1 (03/02/2020), C1J8 (10/02/2020)
     Route: 042
     Dates: start: 20200203, end: 20200210
  6. ALPRAZOLAM CERA 0,25 MG, COMPRIME SECABLE [Concomitant]
     Dosage: 0.5 MG
     Route: 048
  7. FUROSEMIDE. [Concomitant]
     Active Substance: FUROSEMIDE
     Dosage: 20 MG
     Route: 048
  8. SPIRONOLACTONE. [Concomitant]
     Active Substance: SPIRONOLACTONE
     Dosage: 75 MG
     Route: 048
  9. MORPHINE [Concomitant]
     Active Substance: MORPHINE
     Dosage: IMMEDIATE RELEASE; EVERY 6 HOURS IF PAIN,10 MG
     Route: 048
  10. PARACETAMOL [Concomitant]
     Active Substance: ACETAMINOPHEN
     Route: 048
  11. MORPHINE [Concomitant]
     Active Substance: MORPHINE
     Dosage: SUSTAINED RELEASE,60 MG
     Route: 048
  12. PYRIDOXINE [Concomitant]
     Active Substance: PYRIDOXINE
     Route: 048
  13. CLOMIPRAMINE DEFIANTE 75 MG, COMPRIME PELLICULE SECABLE [Concomitant]
     Dosage: 75 MG
     Route: 048
  14. CARBOPLATINE [Concomitant]
     Active Substance: CARBOPLATIN
     Dosage: 6 CURES CARBOPLATINE ERBITUX
     Route: 042
     Dates: end: 20200123
  15. LACTULOSE. [Concomitant]
     Active Substance: LACTULOSE
     Dosage: 20 GRAM
     Route: 048
  16. THIAMINE (CHLORHYDRATE DE) [Concomitant]
     Route: 048
  17. ERBITUX [Concomitant]
     Active Substance: CETUXIMAB
     Dosage: 6 CURES CARBOPLATINE ERBITUX
     Route: 042
     Dates: end: 20200123
  18. ACAMPROSATE CALCIQUE [Concomitant]
     Active Substance: ACAMPROSATE CALCIUM
     Dosage: 6 DOSAGE FORMS
     Route: 048

REACTIONS (1)
  - Interstitial lung disease [Fatal]

NARRATIVE: CASE EVENT DATE: 20200210
